FAERS Safety Report 6508656-4 (Version None)
Quarter: 2009Q4

REPORT INFORMATION
  Report Type: 
  Country: None (occurrence: None)
  Receive Date: 20091221
  Receipt Date: 20090806
  Transmission Date: 20100525
  Serious: No
  Sender: FDA-Public Use
  Company Number: US-ASTRAZENECA-2009SE07101

PATIENT
  Sex: Female
  Weight: 122.5 kg

DRUGS (2)
  1. CRESTOR [Suspect]
     Route: 048
  2. COZAAR [Concomitant]
     Indication: HYPERTENSION

REACTIONS (1)
  - TREMOR [None]
